FAERS Safety Report 9788051 (Version 2)
Quarter: 2014Q1

REPORT INFORMATION
  Report Type: Spontaneous
  Country: IT (occurrence: IT)
  Receive Date: 20131230
  Receipt Date: 20140117
  Transmission Date: 20141002
  Serious: Yes (Hospitalization)
  Sender: FDA-Public Use
  Company Number: IT-SA-2013SA133442

PATIENT
  Age: 80 Year
  Sex: Male

DRUGS (3)
  1. LASIX [Suspect]
     Indication: HYPERTENSION
     Dosage: STRENGTH: 25 MG
     Route: 048
     Dates: start: 2011
  2. ALDACTONE [Suspect]
     Indication: HYPERTENSION
     Dosage: STRENGTH: 25 MG
     Route: 048
     Dates: start: 2011
  3. LOSARTAN [Suspect]
     Indication: HYPERTENSION
     Dosage: STRENGTH: 50 MG
     Route: 048
     Dates: start: 2011

REACTIONS (2)
  - Renal failure acute [Not Recovered/Not Resolved]
  - Pleural effusion [Not Recovered/Not Resolved]
